FAERS Safety Report 20613298 (Version 1)
Quarter: 2022Q1

REPORT INFORMATION
  Report Type: Spontaneous
  Country: US (occurrence: US)
  Receive Date: 20220318
  Receipt Date: 20220318
  Transmission Date: 20220423
  Serious: No
  Sender: FDA-Public Use
  Company Number: US-SEPTODONT-2020006074

PATIENT

DRUGS (4)
  1. LIDOCAINE [Suspect]
     Active Substance: LIDOCAINE
     Route: 004
     Dates: start: 20201226
  2. LIDOCAINE [Suspect]
     Active Substance: LIDOCAINE
     Route: 004
     Dates: start: 20201226
  3. LIDOCAINE [Suspect]
     Active Substance: LIDOCAINE
     Route: 004
     Dates: start: 20201226
  4. SEPTOCAINE [Suspect]
     Active Substance: ARTICAINE HYDROCHLORIDE\EPINEPHRINE BITARTRATE
     Route: 004
     Dates: start: 20201226

REACTIONS (1)
  - Drug ineffective [Unknown]

NARRATIVE: CASE EVENT DATE: 20201226
